FAERS Safety Report 17551045 (Version 1)
Quarter: 2020Q1

REPORT INFORMATION
  Report Type: Spontaneous
  Country: NO (occurrence: NO)
  Receive Date: 20200317
  Receipt Date: 20200317
  Transmission Date: 20200409
  Serious: Yes (Hospitalization)
  Sender: FDA-Public Use
  Company Number: NO-UCBSA-2020011525

PATIENT
  Age: 65 Year
  Sex: Male

DRUGS (5)
  1. VIMPAT [Suspect]
     Active Substance: LACOSAMIDE
     Indication: PARTIAL SEIZURES
     Dosage: 250 MILLIGRAM
     Route: 048
     Dates: start: 201908
  2. ZONEGRAN [Suspect]
     Active Substance: ZONISAMIDE
     Indication: PARTIAL SEIZURES
     Dosage: 225 MILLIGRAM
     Route: 048
     Dates: start: 201912
  3. METFORMIN [Concomitant]
     Active Substance: METFORMIN HYDROCHLORIDE
     Indication: TYPE 2 DIABETES MELLITUS
     Dosage: UNK
  4. LIPITOR [Concomitant]
     Active Substance: ATORVASTATIN CALCIUM
     Indication: PRODUCT USED FOR UNKNOWN INDICATION
  5. MAREVAN [Concomitant]
     Active Substance: WARFARIN SODIUM
     Indication: AORTIC VALVE INCOMPETENCE

REACTIONS (3)
  - Pulmonary haemorrhage [Recovered/Resolved]
  - International normalised ratio fluctuation [Recovered/Resolved]
  - Chest pain [Recovered/Resolved]
